FAERS Safety Report 14067368 (Version 2)
Quarter: 2017Q4

REPORT INFORMATION
  Report Type: Spontaneous
  Country: US (occurrence: US)
  Receive Date: 20171009
  Receipt Date: 20171123
  Transmission Date: 20180321
  Serious: Yes (Other)
  Sender: FDA-Public Use
  Company Number: US-PFIZER INC-2017430837

PATIENT
  Sex: Female
  Weight: 63.5 kg

DRUGS (1)
  1. LYRICA [Suspect]
     Active Substance: PREGABALIN
     Indication: GENERALISED ANXIETY DISORDER
     Dosage: 600 (NO UNITS), DAILY

REACTIONS (17)
  - Panic attack [Unknown]
  - Influenza like illness [Unknown]
  - Product use in unapproved indication [Unknown]
  - Fatigue [Unknown]
  - Pain [Unknown]
  - Drug dependence [Unknown]
  - Malaise [Unknown]
  - Sunburn [Unknown]
  - Myalgia [Unknown]
  - Chills [Unknown]
  - Pain of skin [Unknown]
  - Drug dose omission [Unknown]
  - Lethargy [Unknown]
  - Arthralgia [Unknown]
  - Pain in extremity [Unknown]
  - Feeling abnormal [Unknown]
  - Feeling cold [Unknown]
